FAERS Safety Report 9387404 (Version 5)
Quarter: 2016Q1

REPORT INFORMATION
  Report Type: Spontaneous
  Country: US (occurrence: None)
  Receive Date: 20130702
  Receipt Date: 20160112
  Transmission Date: 20160526
  Serious: Yes (Hospitalization, Other)
  Sender: FDA-Public Use
  Company Number: ADR-2013-01095

PATIENT
  Age: 62 Year
  Sex: Female

DRUGS (1)
  1. LIORESAL [Suspect]
     Active Substance: BACLOFEN
     Indication: MUSCLE SPASTICITY

REACTIONS (9)
  - Dysstasia [None]
  - Muscle tightness [None]
  - Mobility decreased [None]
  - Constipation [None]
  - Overdose [None]
  - No therapeutic response [None]
  - Hypertonia [None]
  - Medical device discomfort [None]
  - Gait disturbance [None]
